FAERS Safety Report 17139766 (Version 1)
Quarter: 2019Q4

REPORT INFORMATION
  Report Type: Report from Study
  Country: NL (occurrence: NL)
  Receive Date: 20191211
  Receipt Date: 20191211
  Transmission Date: 20200122
  Serious: Yes (Other)
  Sender: FDA-Public Use
  Company Number: NL-MYLANLABS-2019M1120941

PATIENT
  Age: 47 Year
  Sex: Female

DRUGS (4)
  1. AZATHIOPRINE. [Concomitant]
     Active Substance: AZATHIOPRINE
     Dosage: 50MG, VOLGENS SCHEMA
     Route: 048
     Dates: start: 20120701, end: 20150504
  2. ADALIMUMAB [Concomitant]
     Active Substance: ADALIMUMAB
     Dosage: 40MG, 1X/2W
     Route: 058
     Dates: start: 20121008, end: 20170117
  3. ALLOPURINOL. [Suspect]
     Active Substance: ALLOPURINOL
     Indication: CROHN^S DISEASE
     Dosage: 100MG, 1X/D
     Route: 048
     Dates: start: 20140114
  4. VITAMINE D [Concomitant]
     Active Substance: CHOLECALCIFEROL
     Dosage: 800IE, 1X/D
     Route: 048
     Dates: start: 20120720

REACTIONS (2)
  - Bradycardia [Recovered/Resolved]
  - Hypertension [Recovered/Resolved]

NARRATIVE: CASE EVENT DATE: 20150313
